FAERS Safety Report 17337917 (Version 1)
Quarter: 2020Q1

REPORT INFORMATION
  Report Type: Spontaneous
  Country: US (occurrence: US)
  Receive Date: 20200113
  Receipt Date: 20200113
  Transmission Date: 20200409
  Serious: Yes (Other)
  Sender: FDA-Public Use
  Company Number: None

PATIENT
  Sex: Female

DRUGS (8)
  1. BUPROPN HCL [Concomitant]
     Active Substance: BUPROPION HYDROCHLORIDE
  2. RIZATRIPTAN. [Concomitant]
     Active Substance: RIZATRIPTAN
  3. VALACYCLOVIR [Concomitant]
     Active Substance: VALACYCLOVIR HYDROCHLORIDE
  4. FENOFIBRATE. [Concomitant]
     Active Substance: FENOFIBRATE
  5. LOSARTAN/HCT [Concomitant]
     Active Substance: HYDROCHLOROTHIAZIDE\LOSARTAN POTASSIUM
  6. GLATIRAMER 40MG/ML SYR [Suspect]
     Active Substance: GLATIRAMER
     Indication: MULTIPLE SCLEROSIS
     Dosage: ?          OTHER DOSE:1 SYR TIW (M/W/F);?
     Route: 058
     Dates: start: 20171206
  7. GABAPENTIN. [Concomitant]
     Active Substance: GABAPENTIN
  8. TOLTERODINE [Concomitant]
     Active Substance: TOLTERODINE

REACTIONS (3)
  - Metastasis [None]
  - Therapy cessation [None]
  - Neoplasm malignant [None]
